FAERS Safety Report 14373327 (Version 2)
Quarter: 2018Q1

REPORT INFORMATION
  Report Type: Report from Study
  Country: MY (occurrence: MY)
  Receive Date: 20180110
  Receipt Date: 20180314
  Transmission Date: 20180509
  Serious: Yes (Other)
  Sender: FDA-Public Use
  Company Number: PHHY2018MY002751

PATIENT
  Age: 69 Year
  Sex: Female

DRUGS (1)
  1. GLIVEC [Suspect]
     Active Substance: IMATINIB MESYLATE
     Indication: CHRONIC MYELOID LEUKAEMIA
     Dosage: 400 MG, UNK
     Route: 065
     Dates: start: 20130429

REACTIONS (5)
  - Platelet count decreased [Unknown]
  - Drug resistance [Unknown]
  - Drug intolerance [Unknown]
  - Haemoglobin decreased [Unknown]
  - Cytopenia [Unknown]

NARRATIVE: CASE EVENT DATE: 20160428
